FAERS Safety Report 5970007-1 (Version None)
Quarter: 2008Q4

REPORT INFORMATION
  Report Type: 
  Country: None (occurrence: None)
  Receive Date: 20081126
  Receipt Date: 20081118
  Transmission Date: 20090506
  Serious: Yes (Other)
  Sender: FDA-Public Use
  Company Number: US-PFIZER INC-2008097757

PATIENT
  Sex: Female
  Weight: 80.454 kg

DRUGS (9)
  1. LYRICA [Suspect]
     Indication: NEURALGIA
     Dosage: TEXT:EVERY DAY
     Route: 048
     Dates: start: 20081010
  2. MORPHINE SULFATE [Concomitant]
  3. OXYCODONE HCL [Concomitant]
  4. ACTIQ [Concomitant]
  5. EFFEXOR XR [Concomitant]
  6. WELLBUTRIN XL [Concomitant]
  7. CREON [Concomitant]
  8. ZOFRAN [Concomitant]
  9. LODINE [Concomitant]

REACTIONS (2)
  - BLOOD GLUCOSE DECREASED [None]
  - DRUG DOSE OMISSION [None]
